FAERS Safety Report 16132121 (Version 3)
Quarter: 2019Q2

REPORT INFORMATION
  Report Type: Spontaneous
  Country: AU (occurrence: AU)
  Receive Date: 20190329
  Receipt Date: 20190516
  Transmission Date: 20190711
  Serious: Yes (Disabling, Other)
  Sender: FDA-Public Use
  Company Number: AU-AMGEN-AUSSP2019045051

PATIENT
  Age: 68 Year
  Sex: Female
  Weight: 102 kg

DRUGS (6)
  1. APIXABAN [Concomitant]
     Active Substance: APIXABAN
     Indication: ATRIAL FIBRILLATION
     Dosage: 5 MILLIGRAM, BID
     Dates: start: 2015
  2. LOSEC [Concomitant]
     Active Substance: OMEPRAZOLE
     Indication: GASTROOESOPHAGEAL REFLUX DISEASE
     Dosage: 20 MILLIGRAM, QD
  3. PERINDOPRIL [Concomitant]
     Active Substance: PERINDOPRIL
     Indication: HYPERTENSION
     Dosage: 4 MILLIGRAM, QD
     Dates: start: 2015
  4. PROLIA [Suspect]
     Active Substance: DENOSUMAB
     Indication: OSTEOPOROSIS
     Dosage: UNK UNK, Q6MO
     Route: 058
     Dates: start: 20151008, end: 20190312
  5. SOTALOL. [Concomitant]
     Active Substance: SOTALOL
     Indication: ATRIAL FIBRILLATION
     Dosage: 80 MILLIGRAM, BID
     Dates: start: 2015
  6. ATORVASTATIN;EZETIMIBE [Concomitant]
     Indication: BLOOD CHOLESTEROL ABNORMAL
     Dosage: 10/80 MG, QD
     Dates: start: 2015

REACTIONS (1)
  - Thoracic vertebral fracture [Not Recovered/Not Resolved]

NARRATIVE: CASE EVENT DATE: 20190214
